FAERS Safety Report 4533619-8 (Version None)
Quarter: 2004Q4

REPORT INFORMATION
  Report Type: 
  Country: None (occurrence: None)
  Receive Date: 20041221
  Receipt Date: 20041213
  Transmission Date: 20050328
  Serious: Yes (Other)
  Sender: FDA-Public Use
  Company Number: PHNU2004DE04166

PATIENT
  Sex: Female

DRUGS (1)
  1. ZOMETA [Suspect]
     Indication: PLASMACYTOMA
     Dosage: UNK, UNK
     Dates: start: 20031201, end: 20040101

REACTIONS (7)
  - BONE LESION [None]
  - BONE SWELLING [None]
  - GINGIVAL DISORDER [None]
  - GINGIVAL OPERATION [None]
  - PAIN IN JAW [None]
  - TOOTH EXTRACTION [None]
  - TRIGEMINAL NERVE DISORDER [None]
